FAERS Safety Report 11848917 (Version 1)
Quarter: 2015Q4

REPORT INFORMATION
  Report Type: Spontaneous
  Country: US (occurrence: None)
  Receive Date: 20151217
  Receipt Date: 20151217
  Transmission Date: 20160305
  Serious: No
  Sender: FDA-Public Use
  Company Number: None

PATIENT
  Age: 51 Year
  Sex: Female

DRUGS (7)
  1. VITAMIN B-6 [Concomitant]
     Active Substance: PYRIDOXINE
  2. LOPERAMIDE [Concomitant]
     Active Substance: LOPERAMIDE
  3. CAPECITABINE 500MG TAB TEVA [Suspect]
     Active Substance: CAPECITABINE
     Indication: NEOPLASM MALIGNANT
     Dosage: 150 MG ?BID 14 DAYS ON ?PO
     Route: 048
     Dates: start: 20150923
  4. TAMOXIFEN [Concomitant]
     Active Substance: TAMOXIFEN
  5. EFFEXOR [Concomitant]
     Active Substance: VENLAFAXINE HYDROCHLORIDE
  6. IRON [Concomitant]
     Active Substance: IRON
  7. CLARITIN-D 12 HOUR [Concomitant]
     Active Substance: LORATADINE\PSEUDOEPHEDRINE SULFATE

REACTIONS (1)
  - Palmar-plantar erythrodysaesthesia syndrome [None]

NARRATIVE: CASE EVENT DATE: 201512
